FAERS Safety Report 8691841 (Version 2)
Quarter: 2013Q1

REPORT INFORMATION
  Report Type: Report from Study
  Country: JP (occurrence: JP)
  Receive Date: 20120730
  Receipt Date: 20130104
  Transmission Date: 20140127
  Serious: Yes (Other)
  Sender: FDA-Public Use
  Company Number: JP-ROCHE-1092189

PATIENT
  Age: 76 Year
  Sex: Male

DRUGS (20)
  1. ALTEPLASE [Suspect]
     Indication: EMBOLIC STROKE
     Route: 042
     Dates: start: 20120310, end: 20120310
  2. RADICUT [Suspect]
     Indication: EMBOLIC STROKE
     Route: 042
     Dates: start: 20120310, end: 20120310
  3. RADICUT [Suspect]
     Route: 042
     Dates: start: 20120311, end: 20120323
  4. WARFARIN POTASSIUM [Concomitant]
     Route: 048
     Dates: start: 20120314
  5. PERDIPINE [Concomitant]
     Route: 051
     Dates: start: 20120310, end: 20120316
  6. TAKEPRON [Concomitant]
     Route: 051
     Dates: start: 20120310, end: 20120313
  7. TAKEPRON [Concomitant]
     Route: 048
     Dates: start: 20120314
  8. LOW MOLECULAR DEXTRAN [Concomitant]
     Route: 051
     Dates: start: 20120310, end: 20120314
  9. LOW MOLECULAR DEXTRAN [Concomitant]
     Route: 051
     Dates: start: 20120310, end: 20120314
  10. SOLULACT [Concomitant]
     Route: 051
     Dates: start: 20120310, end: 20120312
  11. SOLULACT [Concomitant]
     Route: 051
     Dates: start: 20120313, end: 20120313
  12. SOLULACT [Concomitant]
     Route: 051
     Dates: start: 20120314, end: 20120323
  13. WARFARIN POTASSIUM [Concomitant]
     Route: 048
     Dates: start: 20120314, end: 20120323
  14. WARFARIN POTASSIUM [Concomitant]
     Route: 048
     Dates: start: 20120324, end: 20120326
  15. WARFARIN POTASSIUM [Concomitant]
     Route: 048
     Dates: start: 20120327, end: 20120412
  16. WARFARIN POTASSIUM [Concomitant]
     Route: 048
     Dates: start: 20120415
  17. ALLOZYM [Concomitant]
     Route: 048
     Dates: start: 20120314
  18. OLMETEC [Concomitant]
     Route: 048
     Dates: start: 20120316
  19. AMLODIN [Concomitant]
     Route: 048
     Dates: start: 20120316
  20. UNASYN-S [Concomitant]
     Route: 051
     Dates: start: 20120316, end: 20120327

REACTIONS (3)
  - Polyuria [Recovering/Resolving]
  - Renal disorder [Recovering/Resolving]
  - Hepatic function abnormal [Recovering/Resolving]
